FAERS Safety Report 4737030-6 (Version None)
Quarter: 2005Q3

REPORT INFORMATION
  Report Type: 
  Country: None (occurrence: None)
  Receive Date: 20050808
  Receipt Date: 20050803
  Transmission Date: 20060218
  Serious: Yes (Death, Hospitalization)
  Sender: FDA-Public Use
  Company Number: 2005UW11540

PATIENT
  Age: 52 Year
  Sex: Male

DRUGS (4)
  1. CRESTOR [Suspect]
     Route: 048
     Dates: end: 20050728
  2. TOPROL-XL [Concomitant]
     Route: 048
  3. LINISOPRIL [Concomitant]
  4. ASPIRIN [Concomitant]

REACTIONS (4)
  - DEATH [None]
  - HYPOGLYCAEMIA [None]
  - MALAISE [None]
  - MYALGIA [None]
